FAERS Safety Report 13113434 (Version 2)
Quarter: 2017Q1

REPORT INFORMATION
  Report Type: Spontaneous
  Country: BR (occurrence: BR)
  Receive Date: 20170113
  Receipt Date: 20170119
  Transmission Date: 20170428
  Serious: Yes (Hospitalization, Other)
  Sender: FDA-Public Use
  Company Number: BR-PFIZER INC-2017012984

PATIENT
  Sex: Male
  Weight: 93 kg

DRUGS (10)
  1. AMOXICILLIN SODIUM [Concomitant]
     Active Substance: AMOXICILLIN SODIUM
  2. AAS [Concomitant]
     Active Substance: ASPIRIN
     Dosage: 1 DF, 1X/DAY (1 TABLET IN THE LUNCH)
     Route: 048
  3. SIMVASTATIN. [Concomitant]
     Active Substance: SIMVASTATIN
     Dosage: 1 DF, 1X/DAY (1 TABLET IN THE LUNCH)
     Route: 048
  4. FUROSEMIDE. [Concomitant]
     Active Substance: FUROSEMIDE
     Dosage: 1 DF, UNK (1 TABLET)
     Route: 048
  5. AZITROMYCIN [Concomitant]
     Active Substance: AZITHROMYCIN ANHYDROUS
     Indication: PNEUMONIA
     Dosage: 1 DF, UNK (1 TABLET)
     Route: 048
  6. NEBIVOLOL. [Concomitant]
     Active Substance: NEBIVOLOL
     Dosage: 1 DF, UNK (1 TABLET)
     Route: 048
  7. METFORMIN [Concomitant]
     Active Substance: METFORMIN HYDROCHLORIDE
     Dosage: 2 DF, UNK
     Route: 048
  8. CLAVULIN /00756801/ [Concomitant]
     Active Substance: AMOXICILLIN\CLAVULANIC ACID
     Dosage: 1 TABLET, 2X/DAY (1 TABLET FROM 12H TO 12H)
     Route: 048
  9. LYRICA [Suspect]
     Active Substance: PREGABALIN
     Indication: CARDIAC DISORDER
     Dosage: 75 MG, 2X/DAY
     Route: 048
     Dates: start: 201612, end: 20161230
  10. OMEPRAZOLE. [Concomitant]
     Active Substance: OMEPRAZOLE
     Dosage: 1 DF, 1X/DAY (1 TABLET IN THE MORNING IN FASTING)
     Route: 048

REACTIONS (7)
  - Insomnia [Unknown]
  - Pneumonia [Unknown]
  - Acute pulmonary oedema [Unknown]
  - Feeling abnormal [Unknown]
  - Dyspnoea [Unknown]
  - Fluid retention [Unknown]
  - Product use issue [Unknown]

NARRATIVE: CASE EVENT DATE: 201612
